FAERS Safety Report 21785941 (Version 1)
Quarter: 2022Q4

REPORT INFORMATION
  Report Type: Report from Study
  Country: US (occurrence: US)
  Receive Date: 20221228
  Receipt Date: 20221228
  Transmission Date: 20230112
  Serious: Yes (Other)
  Sender: FDA-Public Use
  Company Number: US-ABBVIE-4215235

PATIENT
  Sex: Female

DRUGS (22)
  1. CARBIDOPA\LEVODOPA [Suspect]
     Active Substance: CARBIDOPA\LEVODOPA
     Indication: Product used for unknown indication
     Route: 050
     Dates: start: 20181207
  2. CARBIDOPA\LEVODOPA [Suspect]
     Active Substance: CARBIDOPA\LEVODOPA
  3. VITAMIN D3 [Concomitant]
     Active Substance: CHOLECALCIFEROL
     Indication: Product used for unknown indication
     Dosage: 2000IU
     Route: 048
  4. AMANTADINE [Concomitant]
     Active Substance: AMANTADINE
     Indication: Product used for unknown indication
     Dosage: 100MG
     Route: 048
  5. TRESIBA [Concomitant]
     Active Substance: INSULIN DEGLUDEC
     Indication: Product used for unknown indication
     Dosage: 45UNITS
  6. SINEMET [Concomitant]
     Active Substance: CARBIDOPA\LEVODOPA
     Indication: Product used for unknown indication
     Dosage: 25-100MG
     Route: 048
  7. ZETIA [Concomitant]
     Active Substance: EZETIMIBE
     Indication: Product used for unknown indication
     Dosage: 10MG
     Route: 048
  8. KLOR-CON [Concomitant]
     Active Substance: POTASSIUM CHLORIDE
     Indication: Product used for unknown indication
     Dosage: 10MEQ
     Route: 048
  9. PRAVACHOL [Concomitant]
     Active Substance: PRAVASTATIN SODIUM
     Indication: Product used for unknown indication
     Dosage: 40MG
     Route: 048
  10. KLONOPIN [Concomitant]
     Active Substance: CLONAZEPAM
     Indication: Product used for unknown indication
     Dosage: 0.5MG
     Route: 048
  11. PAXIL [Concomitant]
     Active Substance: PAROXETINE HYDROCHLORIDE
     Indication: Product used for unknown indication
     Dosage: 40MG
     Route: 048
  12. MAXZIDE [Concomitant]
     Active Substance: HYDROCHLOROTHIAZIDE\TRIAMTERENE
     Indication: Product used for unknown indication
     Dosage: 75-50MG
     Route: 048
  13. MYRBETRIQ [Concomitant]
     Active Substance: MIRABEGRON
     Indication: Product used for unknown indication
     Dosage: 50MG
     Route: 048
  14. MELATONIN [Concomitant]
     Active Substance: MELATONIN
     Indication: Product used for unknown indication
     Dosage: 5MG
     Route: 048
  15. METFORMIN [Concomitant]
     Active Substance: METFORMIN HYDROCHLORIDE
     Indication: Product used for unknown indication
     Dosage: 500MG
     Route: 048
  16. SEROQUEL XR [Concomitant]
     Active Substance: QUETIAPINE FUMARATE
     Indication: Product used for unknown indication
     Dosage: 50MG
     Route: 048
  17. SEROQUEL XR [Concomitant]
     Active Substance: QUETIAPINE FUMARATE
     Indication: Product used for unknown indication
     Dosage: 25MG
     Route: 048
  18. DESMOPRESSIN ACETATE [Concomitant]
     Active Substance: DESMOPRESSIN ACETATE
     Indication: Product used for unknown indication
     Dosage: 0.1MG
     Route: 048
  19. ARICEPT [Concomitant]
     Active Substance: DONEPEZIL HYDROCHLORIDE
     Indication: Product used for unknown indication
     Dosage: 10MG
     Route: 048
  20. IRBESARTAN [Concomitant]
     Active Substance: IRBESARTAN
     Indication: Product used for unknown indication
     Dosage: 150MG
     Route: 048
  21. NOVOLOG [Concomitant]
     Active Substance: INSULIN ASPART
     Indication: Product used for unknown indication
     Dosage: 1INJ
     Route: 058
  22. AZOLID [Concomitant]
     Active Substance: PHENYLBUTAZONE
     Indication: Product used for unknown indication
     Dosage: 250-30-50MG
     Route: 048

REACTIONS (1)
  - Hospice care [Recovered/Resolved]
